FAERS Safety Report 5259651-7 (Version None)
Quarter: 2007Q1

REPORT INFORMATION
  Report Type: 
  Country: None (occurrence: None)
  Receive Date: 20070307
  Receipt Date: 20070307
  Transmission Date: 20070707
  Serious: Yes (Other)
  Sender: FDA-Public Use
  Company Number: None

PATIENT
  Age: 18 Year
  Sex: Female
  Weight: 61.2356 kg

DRUGS (2)
  1. 10% BENZOYL PEROXIDE    CONTINUOUS CONTROL ACNE CLEANSER  CLEAN + CLEA [Suspect]
     Indication: ACNE
     Dosage: DIME SIZE   1 TIME PER DAY   TOP
     Route: 061
     Dates: start: 20070218, end: 20070220
  2. 10% BENZOYL PEROXIDE    CONTINUOUS CONTROL ACNE CLEANSER  CLEAN + CLEA [Suspect]
     Indication: ACNE
     Dosage: DIME SIZE   1 TIME PER DAY   TOP
     Route: 061
     Dates: start: 20070305, end: 20070305

REACTIONS (4)
  - ERYTHEMA [None]
  - NO THERAPEUTIC RESPONSE [None]
  - RASH [None]
  - SWELLING FACE [None]
